FAERS Safety Report 6556360-9 (Version None)
Quarter: 2010Q1

REPORT INFORMATION
  Report Type: 
  Country: None (occurrence: None)
  Receive Date: 20100128
  Receipt Date: 20100121
  Transmission Date: 20100710
  Serious: Yes (Other)
  Sender: FDA-Public Use
  Company Number: ES-B.I. PHARMACEUTICALS,INC./RIDGEFIELD-2009-ES-00202PF

PATIENT
  Sex: Male
  Weight: 88 kg

DRUGS (6)
  1. SPIRIVA [Suspect]
     Indication: CHRONIC OBSTRUCTIVE PULMONARY DISEASE
     Dosage: 1 INHALATION/DAY
     Dates: start: 20090911, end: 20090918
  2. SINTROM [Concomitant]
     Route: 048
     Dates: start: 20050927
  3. VALSARTAN [Concomitant]
     Route: 048
     Dates: start: 20050927
  4. TORASEMIDE [Concomitant]
     Route: 048
     Dates: start: 20060612
  5. METFORMIN HCL [Concomitant]
     Route: 048
     Dates: start: 20070423
  6. SYMBICORT [Concomitant]
     Route: 055
     Dates: start: 20061011

REACTIONS (3)
  - BRONCHOSPASM [None]
  - FACE OEDEMA [None]
  - LOCALISED OEDEMA [None]
